FAERS Safety Report 17428876 (Version 2)
Quarter: 2020Q1

REPORT INFORMATION
  Report Type: Spontaneous
  Country: US (occurrence: US)
  Receive Date: 20200218
  Receipt Date: 20200309
  Transmission Date: 20200409
  Serious: No
  Sender: FDA-Public Use
  Company Number: US-ASTRAZENECA-2020SE22330

PATIENT
  Age: 27705 Day
  Sex: Female
  Weight: 78.9 kg

DRUGS (38)
  1. BUPROPION HYDROCHLORIDE SR [Concomitant]
     Active Substance: BUPROPION HYDROCHLORIDE
  2. CELEBREX [Concomitant]
     Active Substance: CELECOXIB
  3. TRAMADOL HCL [Concomitant]
     Active Substance: TRAMADOL HYDROCHLORIDE
     Indication: PAIN
  4. AMLODIPNE BESYLATE [Concomitant]
  5. TYLENOL ARTHRITIS PAIN [Concomitant]
     Active Substance: ACETAMINOPHEN
     Indication: BACK PAIN
     Dosage: TYLENOL EXTRA STRENGTH
  6. IPITROPIUM BROMIDE/ALBUTEROL [Concomitant]
     Dosage: 5.3 AS NEEDED Q 8 HRS
  7. BYDUREON BCISE [Suspect]
     Active Substance: EXENATIDE
     Indication: TYPE 2 DIABETES MELLITUS
     Route: 058
  8. OXYBUTIN CHLORIDE [Concomitant]
  9. ZYRTEC OTC [Concomitant]
  10. PATRIOT POWER GREENS [Concomitant]
     Dosage: 1 SCOOP IN WATER DAILY
  11. RESTASIS [Concomitant]
     Active Substance: CYCLOSPORINE
     Indication: LACRIMATION INCREASED
     Dosage: DROPS IN EACH EYE DAILY
  12. MIRTAZIPINE [Concomitant]
     Active Substance: MIRTAZAPINE
  13. TYLENOL ARTHRITIS PAIN [Concomitant]
     Active Substance: ACETAMINOPHEN
     Indication: BACK PAIN
     Dosage: AT NIGHT
  14. BRIO/ELIPTA [Concomitant]
  15. IRON [Concomitant]
     Active Substance: IRON
  16. NASACORT [Concomitant]
     Active Substance: TRIAMCINOLONE ACETONIDE
     Dosage: AS NEEDED
  17. ASPIRIN. [Concomitant]
     Active Substance: ASPIRIN
  18. LEVOTHYROXINE. [Concomitant]
     Active Substance: LEVOTHYROXINE
  19. CQ10 [Concomitant]
     Active Substance: UBIDECARENONE
  20. FLAX SEED OIT [Concomitant]
     Dosage: 1100
  21. METFORMIN [Concomitant]
     Active Substance: METFORMIN HYDROCHLORIDE
     Indication: TYPE 2 DIABETES MELLITUS
  22. VENFAXINE HCL [Concomitant]
  23. ISOSORBIDE MONONITRATE ER [Concomitant]
     Active Substance: ISOSORBIDE MONONITRATE
     Dosage: 30 NO UNIT EVERY DAY
  24. LOVASTATIN. [Concomitant]
     Active Substance: LOVASTATIN
  25. LISINOPRIL. [Concomitant]
     Active Substance: LISINOPRIL
  26. ONDANSETRON [Concomitant]
     Active Substance: ONDANSETRON
  27. DEXILANT [Concomitant]
     Active Substance: DEXLANSOPRAZOLE
  28. GLYCOLAX [Concomitant]
     Active Substance: POLYETHYLENE GLYCOL 3350
     Dosage: 17 G AS NEEDED
  29. VENTOLIN HFA [Concomitant]
     Active Substance: ALBUTEROL SULFATE
     Dosage: AS NEEDED
  30. CITRICAL [Concomitant]
     Active Substance: CALCIUM CITRATE
  31. ALLERGY SHOTS [Concomitant]
     Active Substance: UNSPECIFIED INGREDIENT
  32. CENTRUM SILVER [Concomitant]
     Active Substance: MINERALS\VITAMINS
  33. LORAZEPAM. [Concomitant]
     Active Substance: LORAZEPAM
     Indication: INSOMNIA
  34. MONTELUCKAST [Concomitant]
  35. GABAPENTIN. [Concomitant]
     Active Substance: GABAPENTIN
  36. OSTEO BIFLEX [Concomitant]
     Active Substance: CHONDROITIN SULFATE A\GLUCOSAMINE
     Indication: BONE DISORDER
  37. PROLIA [Concomitant]
     Active Substance: DENOSUMAB
     Indication: BONE DISORDER
     Dosage: EVERY 6 MONTHS FOR BONES
  38. RANTADINE [Concomitant]

REACTIONS (8)
  - Dyspnoea [Recovered/Resolved]
  - Injection site nodule [Unknown]
  - Intentional device misuse [Unknown]
  - Injection site pain [Unknown]
  - Incorrect dose administered by device [Unknown]
  - Injection site erythema [Recovering/Resolving]
  - Device leakage [Unknown]
  - Device issue [Unknown]

NARRATIVE: CASE EVENT DATE: 20200211
